FAERS Safety Report 19012034 (Version 3)
Quarter: 2021Q2

REPORT INFORMATION
  Report Type: Report from Study
  Country: None (occurrence: US)
  Receive Date: 20210316
  Receipt Date: 20210411
  Transmission Date: 20210717
  Serious: Yes (Other)
  Sender: FDA-Public Use
  Company Number: US-ABBVIE-21K-163-3812239-00

PATIENT
  Sex: Female

DRUGS (1)
  1. HUMIRA [Suspect]
     Active Substance: ADALIMUMAB
     Indication: CROHN^S DISEASE
     Dosage: CITRATE FREE
     Route: 058
     Dates: start: 202012

REACTIONS (11)
  - Hernia [Recovered/Resolved]
  - Streptococcal urinary tract infection [Recovered/Resolved]
  - Skin discolouration [Recovered/Resolved]
  - Bronchitis [Not Recovered/Not Resolved]
  - Adverse food reaction [Unknown]
  - Night sweats [Recovered/Resolved]
  - Blood pressure increased [Recovered/Resolved]
  - Abdominal pain upper [Recovered/Resolved]
  - Bladder catheterisation [Unknown]
  - Urinary bladder suspension [Recovered/Resolved]
  - Heart rate increased [Recovered/Resolved]

NARRATIVE: CASE EVENT DATE: 2021
